FAERS Safety Report 25102801 (Version 1)
Quarter: 2025Q1

REPORT INFORMATION
  Report Type: Report from Study
  Country: CA (occurrence: CA)
  Receive Date: 20250321
  Receipt Date: 20250321
  Transmission Date: 20250409
  Serious: Yes (Hospitalization)
  Sender: ABBVIE
  Company Number: CA-ABBVIE-6185049

PATIENT
  Age: 63 Year
  Sex: Female

DRUGS (1)
  1. HUMIRA [Suspect]
     Active Substance: ADALIMUMAB
     Indication: Pyoderma gangrenosum
     Route: 058

REACTIONS (14)
  - Pelvic fracture [Unknown]
  - Hip arthroplasty [Unknown]
  - Fall [Unknown]
  - Hypoaesthesia [Unknown]
  - Rotator cuff syndrome [Unknown]
  - Fracture nonunion [Unknown]
  - Spinal cord oedema [Unknown]
  - Myelomalacia [Unknown]
  - Spondylolisthesis [Unknown]
  - Rehabilitation therapy [Unknown]
  - Neck pain [Unknown]
  - Muscular weakness [Unknown]
  - Osteoarthritis [Unknown]
  - Injury [Unknown]

NARRATIVE: CASE EVENT DATE: 20231201
